FAERS Safety Report 4893589-X (Version None)
Quarter: 2006Q1

REPORT INFORMATION
  Report Type: 
  Country: None (occurrence: None)
  Receive Date: 20060124
  Receipt Date: 20060112
  Transmission Date: 20060701
  Serious: Yes (Hospitalization, Other)
  Sender: FDA-Public Use
  Company Number: 2005165703

PATIENT
  Age: 22 Year
  Sex: Female

DRUGS (2)
  1. DEPO-PROVERA [Suspect]
     Indication: CONTRACEPTION
     Dosage: SEE IMAGE
     Dates: start: 20030301, end: 20030301
  2. DEPO-PROVERA [Suspect]
     Indication: CONTRACEPTION
     Dosage: SEE IMAGE
     Dates: start: 20050926, end: 20050926

REACTIONS (7)
  - ABDOMINAL PAIN [None]
  - ABORTION SPONTANEOUS [None]
  - BACK PAIN [None]
  - HYPOTENSION [None]
  - PREGNANCY WITH INJECTABLE CONTRACEPTIVE [None]
  - UTERINE DISORDER [None]
  - VARICOSE VEIN [None]
